FAERS Safety Report 13752523 (Version 4)
Quarter: 2017Q3

REPORT INFORMATION
  Report Type: Report from Study
  Country: US (occurrence: US)
  Receive Date: 20170713
  Receipt Date: 20170822
  Transmission Date: 20171127
  Serious: Yes (Hospitalization)
  Sender: FDA-Public Use
  Company Number: US-JNJFOC-20170708219

PATIENT
  Age: 23 Year
  Sex: Female
  Weight: 76.4 kg

DRUGS (2)
  1. REMICADE [Suspect]
     Active Substance: INFLIXIMAB
     Indication: INFLAMMATORY BOWEL DISEASE
     Route: 042
     Dates: start: 20090416
  2. STELARA [Concomitant]
     Active Substance: USTEKINUMAB
     Route: 058

REACTIONS (2)
  - Crohn^s disease [Recovered/Resolved]
  - Abdominal abscess [Recovered/Resolved]

NARRATIVE: CASE EVENT DATE: 20170525
